FAERS Safety Report 8225841-4 (Version None)
Quarter: 2012Q1

REPORT INFORMATION
  Report Type: 
  Country: None (occurrence: None)
  Receive Date: 20120319
  Receipt Date: 20120314
  Transmission Date: 20120608
  Serious: Yes (Other)
  Sender: FDA-Public Use
  Company Number: A0969831A

PATIENT
  Age: 50 Year
  Sex: Female

DRUGS (2)
  1. CLINDAMYCIN HCL [Suspect]
  2. BENZOYL PEROXIDE (FORMULATION UNKNOWN) (BENZOYL PEROXIDE) [Suspect]
     Indication: RASH

REACTIONS (14)
  - DERMATITIS [None]
  - SKIN FISSURES [None]
  - RASH [None]
  - MACULE [None]
  - SKIN BURNING SENSATION [None]
  - ACNE [None]
  - DRUG ADMINISTRATION ERROR [None]
  - DRUG INTERACTION [None]
  - SKIN ATROPHY [None]
  - WOUND [None]
  - SKIN DISCOLOURATION [None]
  - DRY SKIN [None]
  - PRURITUS [None]
  - CONDITION AGGRAVATED [None]
